FAERS Safety Report 24041956 (Version 2)
Quarter: 2024Q3

REPORT INFORMATION
  Report Type: Report from Study
  Country: SE (occurrence: SE)
  Receive Date: 20240702
  Receipt Date: 20240713
  Transmission Date: 20241016
  Serious: Yes (Congenital Anomaly)
  Sender: TEVA
  Company Number: SE-TEVA-VS-3215031

PATIENT

DRUGS (1)
  1. FINGOLIMOD [Suspect]
     Active Substance: FINGOLIMOD
     Indication: Product used for unknown indication
     Route: 064

REACTIONS (2)
  - Congenital anomaly [Unknown]
  - Foetal exposure during pregnancy [Unknown]
